FAERS Safety Report 21194731 (Version 1)
Quarter: 2022Q3

REPORT INFORMATION
  Report Type: Spontaneous
  Country: CN (occurrence: None)
  Receive Date: 20220810
  Receipt Date: 20220810
  Transmission Date: 20221027
  Serious: Yes (Hospitalization, Other)
  Sender: FDA-Public Use
  Company Number: 2022A276460

PATIENT
  Age: 29624 Day
  Sex: Female
  Weight: 45 kg

DRUGS (1)
  1. DAPAGLIFLOZIN [Suspect]
     Active Substance: DAPAGLIFLOZIN
     Indication: Blood glucose increased
     Route: 048
     Dates: start: 20210326, end: 20220721

REACTIONS (2)
  - Metabolic acidosis [Recovering/Resolving]
  - Escherichia urinary tract infection [Recovering/Resolving]

NARRATIVE: CASE EVENT DATE: 20220720
